FAERS Safety Report 15295675 (Version 1)
Quarter: 2018Q3

REPORT INFORMATION
  Report Type: Spontaneous
  Country: FR (occurrence: FR)
  Receive Date: 20180820
  Receipt Date: 20180820
  Transmission Date: 20181010
  Serious: Yes (Life-Threatening, Other)
  Sender: FDA-Public Use
  Company Number: FR-GLAXOSMITHKLINE-FR2018146211

PATIENT
  Age: 14 Year
  Sex: Male
  Weight: 48 kg

DRUGS (2)
  1. TERCIAN [Suspect]
     Active Substance: CYAMEMAZINE
     Indication: SLEEP DISORDER
     Dosage: 12 MG, QD
     Route: 048
     Dates: start: 2014, end: 20180725
  2. ZOVIRAX [Suspect]
     Active Substance: ACYCLOVIR
     Indication: HERPES SIMPLEX
     Dosage: 400 MG, QD
     Route: 048
     Dates: start: 2015, end: 20180725

REACTIONS (1)
  - Cardiomyopathy [Not Recovered/Not Resolved]

NARRATIVE: CASE EVENT DATE: 20180725
